FAERS Safety Report 23858039 (Version 1)
Quarter: 2024Q2

REPORT INFORMATION
  Report Type: Spontaneous
  Country: US (occurrence: US)
  Receive Date: 20240515
  Receipt Date: 20240515
  Transmission Date: 20240716
  Serious: Yes (Other)
  Sender: FDA-Public Use
  Company Number: US-ROCHE-2634199

PATIENT
  Sex: Female
  Weight: 72.639 kg

DRUGS (28)
  1. CLONAZEPAM [Suspect]
     Active Substance: CLONAZEPAM
     Indication: Anxiety
     Dosage: 1 MG, THREE TIMES A DAY
     Route: 048
  2. OCREVUS [Suspect]
     Active Substance: OCRELIZUMAB
     Indication: Primary progressive multiple sclerosis
     Dosage: UNK, EVERY 3 MONTHS
     Route: 042
     Dates: start: 2019
  3. OCREVUS [Suspect]
     Active Substance: OCRELIZUMAB
     Indication: Relapsing-remitting multiple sclerosis
     Dosage: UNK, EVERY 3 MONTHS
     Route: 042
     Dates: start: 2019
  4. OCREVUS [Suspect]
     Active Substance: OCRELIZUMAB
     Indication: Primary progressive multiple sclerosis
     Dosage: 300 MG, EVERY 15 DAYS (DATES OF TREATMENT: 05/APR 2019, 19/APR/2019, 07/SEP/2019, 18/OCT/2019, 22...
     Route: 042
     Dates: start: 20190207
  5. OCREVUS [Suspect]
     Active Substance: OCRELIZUMAB
     Indication: Relapsing-remitting multiple sclerosis
     Dosage: 300 MG, EVERY 15 DAYS (DATES OF TREATMENT: 05/APR 2019, 19/APR/2019, 07/SEP/2019, 18/OCT/2019, 22...
     Route: 042
     Dates: start: 20190207
  6. OCREVUS [Suspect]
     Active Substance: OCRELIZUMAB
     Indication: Primary progressive multiple sclerosis
     Dosage: 300 MG, EVERY 15 DAYS
     Route: 042
     Dates: start: 20190405
  7. OCREVUS [Suspect]
     Active Substance: OCRELIZUMAB
     Indication: Relapsing-remitting multiple sclerosis
     Dosage: 300 MG, EVERY 15 DAYS
     Route: 042
     Dates: start: 20190405
  8. OCREVUS [Suspect]
     Active Substance: OCRELIZUMAB
     Indication: Primary progressive multiple sclerosis
     Dosage: 300 MG, EVERY 15 DAYS
     Route: 042
     Dates: start: 20190419
  9. OCREVUS [Suspect]
     Active Substance: OCRELIZUMAB
     Indication: Relapsing-remitting multiple sclerosis
     Dosage: 300 MG, EVERY 15 DAYS
     Route: 042
     Dates: start: 20190419
  10. OCREVUS [Suspect]
     Active Substance: OCRELIZUMAB
     Indication: Primary progressive multiple sclerosis
     Dosage: 300 MG, EVERY 15 DAYS
     Route: 042
     Dates: start: 20190907
  11. OCREVUS [Suspect]
     Active Substance: OCRELIZUMAB
     Indication: Relapsing-remitting multiple sclerosis
     Dosage: 300 MG, EVERY 15 DAYS
     Route: 042
     Dates: start: 20190907
  12. OCREVUS [Suspect]
     Active Substance: OCRELIZUMAB
     Indication: Primary progressive multiple sclerosis
     Dosage: UNK, SECOND HALF DOSE
     Route: 042
     Dates: start: 201910
  13. OCREVUS [Suspect]
     Active Substance: OCRELIZUMAB
     Indication: Relapsing-remitting multiple sclerosis
     Dosage: UNK, SECOND HALF DOSE
     Route: 042
     Dates: start: 201910
  14. OCREVUS [Suspect]
     Active Substance: OCRELIZUMAB
     Indication: Primary progressive multiple sclerosis
     Dosage: 300 MG, EVERY 15 DAYS
     Route: 042
     Dates: start: 20191018
  15. OCREVUS [Suspect]
     Active Substance: OCRELIZUMAB
     Indication: Relapsing-remitting multiple sclerosis
     Dosage: 300 MG, EVERY 15 DAYS
     Route: 042
     Dates: start: 20191018
  16. OCREVUS [Suspect]
     Active Substance: OCRELIZUMAB
     Indication: Primary progressive multiple sclerosis
     Dosage: 300 MG, EVERY 15 DAYS
     Route: 042
     Dates: start: 20200622
  17. OCREVUS [Suspect]
     Active Substance: OCRELIZUMAB
     Indication: Relapsing-remitting multiple sclerosis
     Dosage: 300 MG, EVERY 15 DAYS
     Route: 042
     Dates: start: 20200622
  18. OCREVUS [Suspect]
     Active Substance: OCRELIZUMAB
     Indication: Primary progressive multiple sclerosis
     Dosage: 600 MG, EVERY 6 MONTHS
     Route: 042
  19. OCREVUS [Suspect]
     Active Substance: OCRELIZUMAB
     Indication: Relapsing-remitting multiple sclerosis
     Dosage: 600 MG, EVERY 6 MONTHS
     Route: 042
  20. BENADRYL [Suspect]
     Active Substance: DIPHENHYDRAMINE HYDROCHLORIDE
     Indication: Product used for unknown indication
     Route: 042
     Dates: start: 20200331
  21. WELLBUTRIN [Concomitant]
     Active Substance: BUPROPION HYDROCHLORIDE
     Indication: Depression
     Dosage: 300 MG, DAILY
     Route: 048
  22. CELEXA [Concomitant]
     Active Substance: CITALOPRAM HYDROBROMIDE
     Indication: Depression
     Dosage: 40 MG, DAILY
     Route: 048
  23. ADDERALL [Concomitant]
     Active Substance: AMPHETAMINE ASPARTATE\AMPHETAMINE SULFATE\DEXTROAMPHETAMINE SACCHARATE\DEXTROAMPHETAMINE SULFATE
     Dosage: 50 MG, BID, SECOND DOSE IS AS NEEDED AT NOON
     Route: 048
  24. CINAMET [Concomitant]
     Indication: Tremor
     Dosage: TWO (25 MG / 100 MG) TABLETS THREE TIMES A DAY
     Route: 048
  25. GABAPENTIN [Concomitant]
     Active Substance: GABAPENTIN
  26. LEVODOPA [Concomitant]
     Active Substance: LEVODOPA
  27. CITALOPRAM [Concomitant]
     Active Substance: CITALOPRAM\CITALOPRAM HYDROBROMIDE
  28. BUPROPION [Concomitant]
     Active Substance: BUPROPION

REACTIONS (23)
  - Arthritis [Unknown]
  - Joint swelling [Unknown]
  - Hand fracture [Recovered/Resolved]
  - Pain in extremity [Recovered/Resolved]
  - Fatigue [Not Recovered/Not Resolved]
  - Cognitive disorder [Not Recovered/Not Resolved]
  - Fall [Unknown]
  - Headache [Unknown]
  - Shoulder fracture [Unknown]
  - Ligament sprain [Unknown]
  - Burning sensation [Recovered/Resolved]
  - Balance disorder [Not Recovered/Not Resolved]
  - Muscular weakness [Unknown]
  - Joint swelling [Not Recovered/Not Resolved]
  - Asthenia [Unknown]
  - Restless legs syndrome [Not Recovered/Not Resolved]
  - Bone pain [Unknown]
  - Memory impairment [Unknown]
  - Peroneal nerve palsy [Unknown]
  - Pain [Unknown]
  - Gait disturbance [Unknown]
  - Tremor [Unknown]
  - Speech disorder [Unknown]

NARRATIVE: CASE EVENT DATE: 20190101
